FAERS Safety Report 18439915 (Version 1)
Quarter: 2020Q4

REPORT INFORMATION
  Report Type: Spontaneous
  Country: US (occurrence: US)
  Receive Date: 20201028
  Receipt Date: 20201028
  Transmission Date: 20210114
  Serious: Yes (Other)
  Sender: FDA-Public Use
  Company Number: None

PATIENT
  Age: 37 Year
  Sex: Female
  Weight: 61.8 kg

DRUGS (2)
  1. MOOG CURTIN INFUSION ADMINISTRATION SET REF 340-4134, LOT# CF2012203 [Concomitant]
     Active Substance: DEVICE
  2. MORPHINE [Suspect]
     Active Substance: MORPHINE

REACTIONS (6)
  - Oxygen saturation decreased [None]
  - Device malfunction [None]
  - Device infusion issue [None]
  - Device information output issue [None]
  - Incorrect dose administered by device [None]
  - Lethargy [None]

NARRATIVE: CASE EVENT DATE: 20201015
